FAERS Safety Report 23194905 (Version 1)
Quarter: 2023Q4

REPORT INFORMATION
  Report Type: Spontaneous
  Country: US (occurrence: None)
  Receive Date: 20231117
  Receipt Date: 20231117
  Transmission Date: 20240109
  Serious: No
  Sender: FDA-Public Use
  Company Number: US-ACS-20230327

PATIENT
  Age: 70 Year
  Sex: Female

DRUGS (5)
  1. MEROPENEM [Suspect]
     Active Substance: MEROPENEM
     Dosage: ()
     Route: 040
  2. DAPTOMYCIN [Suspect]
     Active Substance: DAPTOMYCIN
     Dosage: ()
     Route: 040
  3. LINEZOLID [Suspect]
     Active Substance: LINEZOLID
     Dosage: ()
     Route: 040
  4. TIGECYCLINE [Suspect]
     Active Substance: TIGECYCLINE
     Dosage: ()
     Route: 040
  5. AMIKACIN [Suspect]
     Active Substance: AMIKACIN
     Dosage: ()
     Route: 040

REACTIONS (2)
  - Gastrointestinal disorder [Unknown]
  - Hypersensitivity [Unknown]
